FAERS Safety Report 6267864-0 (Version None)
Quarter: 2009Q3

REPORT INFORMATION
  Report Type: 
  Country: None (occurrence: None)
  Receive Date: 20090710
  Receipt Date: 20090710
  Transmission Date: 20100115
  Serious: Yes (Other)
  Sender: FDA-Public Use
  Company Number: None

PATIENT
  Age: 69 Year
  Sex: Male
  Weight: 81.6475 kg

DRUGS (1)
  1. COSOPT [Suspect]
     Indication: OPEN ANGLE GLAUCOMA
     Dosage: 1 DROP BID OPHTHALMIC
     Route: 047
     Dates: start: 20090311, end: 20090708

REACTIONS (2)
  - INTRAOCULAR PRESSURE INCREASED [None]
  - PRODUCT SUBSTITUTION ISSUE [None]
